FAERS Safety Report 25286738 (Version 2)
Quarter: 2025Q3

REPORT INFORMATION
  Report Type: Spontaneous
  Country: US (occurrence: US)
  Receive Date: 20250509
  Receipt Date: 20250701
  Transmission Date: 20251020
  Serious: No
  Sender: EISAI
  Company Number: US-Eisai-EC-2025-188397

PATIENT
  Age: 72 Year
  Sex: Female

DRUGS (1)
  1. LEQEMBI [Suspect]
     Active Substance: LECANEMAB-IRMB
     Indication: Dementia Alzheimer^s type
     Dates: start: 20250425

REACTIONS (8)
  - Somnolence [Not Recovered/Not Resolved]
  - Influenza like illness [Recovered/Resolved]
  - Trismus [Recovered/Resolved]
  - Eye haemorrhage [Recovered/Resolved]
  - Migraine [Recovered/Resolved]
  - Toothache [Recovered/Resolved]
  - Abdominal distension [Not Recovered/Not Resolved]
  - Abdominal pain [Not Recovered/Not Resolved]

NARRATIVE: CASE EVENT DATE: 20250101
